FAERS Safety Report 19444871 (Version 2)
Quarter: 2022Q2

REPORT INFORMATION
  Report Type: Spontaneous
  Country: JP (occurrence: JP)
  Receive Date: 20210621
  Receipt Date: 20220503
  Transmission Date: 20220720
  Serious: Yes (Death, Hospitalization)
  Sender: FDA-Public Use
  Company Number: JP-ELI_LILLY_AND_COMPANY-JP202106008538

PATIENT
  Age: 73 Year
  Sex: Female
  Weight: 41 kg

DRUGS (18)
  1. ADCIRCA [Suspect]
     Active Substance: TADALAFIL
     Indication: Pulmonary arterial hypertension
     Dosage: 40 MG, DAILY
     Route: 065
     Dates: start: 20180116, end: 20190119
  2. UPTRAVI [Suspect]
     Active Substance: SELEXIPAG
     Indication: Pulmonary arterial hypertension
     Dosage: 0.4 MG, BID
     Route: 048
     Dates: start: 20180312, end: 20180401
  3. UPTRAVI [Suspect]
     Active Substance: SELEXIPAG
     Dosage: 0.8 MG, BID
     Route: 048
     Dates: start: 20180402, end: 20180415
  4. UPTRAVI [Suspect]
     Active Substance: SELEXIPAG
     Dosage: 1.2 MG, BID
     Route: 048
     Dates: start: 20180416, end: 20180506
  5. UPTRAVI [Suspect]
     Active Substance: SELEXIPAG
     Dosage: 1.6 MG, BID
     Route: 048
     Dates: start: 20180507, end: 20180520
  6. UPTRAVI [Suspect]
     Active Substance: SELEXIPAG
     Dosage: 2 MG, BID
     Route: 048
     Dates: start: 20180521, end: 20180603
  7. UPTRAVI [Suspect]
     Active Substance: SELEXIPAG
     Dosage: 2.4 MG, BID
     Route: 048
     Dates: start: 20180604, end: 20180617
  8. UPTRAVI [Suspect]
     Active Substance: SELEXIPAG
     Dosage: 2.8 MG, BID
     Route: 048
     Dates: start: 20180618, end: 20180701
  9. UPTRAVI [Suspect]
     Active Substance: SELEXIPAG
     Dosage: 3.2 MG, BID
     Route: 048
     Dates: start: 20180702, end: 20190119
  10. WARFARIN [Suspect]
     Active Substance: WARFARIN
     Indication: Product used for unknown indication
     Dosage: 3 MG, DAILY
     Route: 048
     Dates: start: 20171201, end: 20181114
  11. OPSUMIT [Concomitant]
     Active Substance: MACITENTAN
     Indication: Pulmonary arterial hypertension
     Dosage: UNK, UNKNOWN
     Route: 065
     Dates: start: 20180130, end: 20190119
  12. AZOSEMIDE [Concomitant]
     Active Substance: AZOSEMIDE
     Indication: Product used for unknown indication
     Dosage: 30 MG, UNKNOWN
     Route: 065
     Dates: start: 20180112
  13. SPIRONOLACTONE [Concomitant]
     Active Substance: SPIRONOLACTONE
     Indication: Product used for unknown indication
     Dosage: 50 MG, UNKNOWN
     Route: 065
     Dates: start: 20180115
  14. POTASSIUM ASPARTATE [Concomitant]
     Active Substance: POTASSIUM ASPARTATE
     Indication: Prophylaxis
     Dosage: 300 MG, UNKNOWN
     Route: 065
     Dates: start: 20181109
  15. FERROUS CITRATE [Concomitant]
     Active Substance: FERROUS CITRATE
     Indication: Prophylaxis
     Dosage: 100 MG, UNKNOWN
     Route: 065
     Dates: start: 20180507, end: 20181130
  16. VITAMEDIN [BENFOTIAMINE;CYANOCOBALAMIN;PYRIDO [Concomitant]
     Indication: Prophylaxis
     Dosage: 3 DOSAGE FORM, UNKNOWN
     Route: 065
     Dates: start: 20180521, end: 20181129
  17. ZOLPIDEM TARTRATE [Concomitant]
     Active Substance: ZOLPIDEM TARTRATE
     Indication: Insomnia
     Dosage: 5 MG, UNKNOWN
     Route: 065
     Dates: start: 20180224
  18. ETIZOLAM [Concomitant]
     Active Substance: ETIZOLAM
     Indication: Anxiety
     Dosage: 0.5 MG, UNKNOWN
     Route: 065
     Dates: start: 20180416

REACTIONS (3)
  - Pneumonia [Fatal]
  - Subdural haematoma [Recovering/Resolving]
  - General physical health deterioration [Unknown]

NARRATIVE: CASE EVENT DATE: 20181114
